FAERS Safety Report 4437414-X (Version None)
Quarter: 2004Q3

REPORT INFORMATION
  Report Type: 
  Country: None (occurrence: None)
  Receive Date: 20040830
  Receipt Date: 20040830
  Transmission Date: 20050211
  Serious: Yes (Life-Threatening)
  Sender: FDA-Public Use
  Company Number: None

PATIENT
  Age: 33 Year
  Sex: Male

DRUGS (4)
  1. SEROQUEL [Suspect]
     Indication: DEPRESSION
     Dosage: 20 TABS (4,000 MG)
  2. GEODON [Concomitant]
  3. DEPAKOTE [Concomitant]
  4. COGENTIN [Concomitant]

REACTIONS (3)
  - AMMONIA INCREASED [None]
  - DRUG ABUSER [None]
  - OVERDOSE [None]
